FAERS Safety Report 23779137 (Version 1)
Quarter: 2024Q2

REPORT INFORMATION
  Report Type: Spontaneous
  Country: TH (occurrence: TH)
  Receive Date: 20240424
  Receipt Date: 20240424
  Transmission Date: 20240717
  Serious: Yes (Death, Other)
  Sender: FDA-Public Use
  Company Number: TH-AMGEN-USASP2024080220

PATIENT

DRUGS (1)
  1. INFLIXIMAB [Suspect]
     Active Substance: INFLIXIMAB
     Indication: Crohn^s disease
     Dosage: UNK
     Route: 065

REACTIONS (7)
  - Death [Fatal]
  - Anal cancer [Fatal]
  - Intestinal adenocarcinoma [Unknown]
  - Anal squamous cell carcinoma [Unknown]
  - Squamous cell carcinoma [Unknown]
  - Crohn^s disease [Unknown]
  - Iron deficiency anaemia [Unknown]
